FAERS Safety Report 8777765 (Version 2)
Quarter: 2012Q4

REPORT INFORMATION
  Report Type: 
  Country: JP (occurrence: JP)
  Receive Date: 20120911
  Receipt Date: 20121010
  Transmission Date: 20130627
  Serious: Yes (Hospitalization)
  Sender: FDA-Public Use
  Company Number: PHHY2012JP078487

PATIENT
  Age: 75 Year
  Sex: Male

DRUGS (1)
  1. NEORAL [Suspect]
     Dosage: UNK
     Route: 048
     Dates: end: 20120907

REACTIONS (1)
  - Coronary artery stenosis [Unknown]
